FAERS Safety Report 20549012 (Version 1)
Quarter: 2022Q1

REPORT INFORMATION
  Report Type: Spontaneous
  Country: US (occurrence: US)
  Receive Date: 20220303
  Receipt Date: 20220303
  Transmission Date: 20220423
  Serious: No
  Sender: FDA-Public Use
  Company Number: US-BRAINTREE LABORATORIES, INC.-2021BTE01089

PATIENT
  Age: 81 Year
  Sex: Female
  Weight: 73.028 kg

DRUGS (3)
  1. SUTAB [Suspect]
     Active Substance: MAGNESIUM SULFATE\POTASSIUM CHLORIDE\SODIUM SULFATE
     Indication: Colonoscopy
     Dosage: 2 X 10 TABLETS, 1X
     Dates: start: 20211205, end: 20211206
  2. LISINOPRIL [Concomitant]
     Active Substance: LISINOPRIL
  3. LOVASTATIN [Concomitant]
     Active Substance: LOVASTATIN

REACTIONS (3)
  - Heart rate increased [Unknown]
  - Drug ineffective [Recovered/Resolved]
  - Underdose [Recovered/Resolved]

NARRATIVE: CASE EVENT DATE: 20211205
